FAERS Safety Report 11062174 (Version 1)
Quarter: 2015Q2

REPORT INFORMATION
  Report Type: Spontaneous
  Country: CN (occurrence: CN)
  Receive Date: 20150424
  Receipt Date: 20150424
  Transmission Date: 20150821
  Serious: Yes (Other)
  Sender: FDA-Public Use
  Company Number: CN-BAYER-2015-135298

PATIENT
  Age: 33 Year
  Sex: Female
  Weight: 47 kg

DRUGS (3)
  1. AVELOX [Suspect]
     Active Substance: MOXIFLOXACIN HYDROCHLORIDE
     Indication: INFECTION
     Dosage: 0.4 G, QD
     Route: 048
     Dates: start: 20140404, end: 20140423
  2. METRONIDAZOLE. [Suspect]
     Active Substance: METRONIDAZOLE
     Indication: INJECTION
     Dosage: 100 ML, TID
     Route: 041
     Dates: start: 20140404, end: 20140423
  3. PIPERACILLIN [Suspect]
     Active Substance: PIPERACILLIN
     Indication: INFECTION
     Dosage: 3 G, TID
     Route: 041
     Dates: start: 20140404, end: 20140423

REACTIONS (2)
  - Hepatic function abnormal [Recovering/Resolving]
  - Henoch-Schonlein purpura [Recovering/Resolving]

NARRATIVE: CASE EVENT DATE: 20140423
